FAERS Safety Report 6634807-7 (Version None)
Quarter: 2010Q1

REPORT INFORMATION
  Report Type: 
  Country: None (occurrence: None)
  Receive Date: 20100315
  Receipt Date: 20100305
  Transmission Date: 20100710
  Serious: Yes (Other)
  Sender: FDA-Public Use
  Company Number: BR-PFIZER INC-2010029297

PATIENT
  Age: 31 Year
  Sex: Female
  Weight: 80 kg

DRUGS (3)
  1. DEPO-PROVERA [Suspect]
     Indication: CONTRACEPTION
     Dosage: 150 MG, EVERY 3 MONTHS
     Route: 030
     Dates: start: 20091118
  2. DEPO-PROVERA [Suspect]
     Indication: MENSTRUAL DISCOMFORT
  3. CAPTOPRIL [Concomitant]
     Indication: HYPERTENSION
     Dosage: 25 MG, UNK
     Dates: start: 20070101

REACTIONS (4)
  - BLINDNESS [None]
  - EXOPHTHALMOS [None]
  - METRORRHAGIA [None]
  - UVEITIS [None]
